FAERS Safety Report 9910147 (Version 2)
Quarter: 2014Q1

REPORT INFORMATION
  Report Type: Spontaneous
  Country: US (occurrence: US)
  Receive Date: 20140219
  Receipt Date: 20140219
  Transmission Date: 20141002
  Serious: No
  Sender: FDA-Public Use
  Company Number: US-GILEAD-2012-0055290

PATIENT
  Sex: Female

DRUGS (4)
  1. LETAIRIS [Suspect]
     Indication: PRODUCT USED FOR UNKNOWN INDICATION
     Dosage: 5 MG, UNK
     Route: 048
     Dates: start: 20110714
  2. TYVASO [Suspect]
  3. REMODULIN [Concomitant]
  4. OXYGEN [Concomitant]

REACTIONS (5)
  - Oxygen supplementation [Unknown]
  - Decreased appetite [Unknown]
  - General physical health deterioration [Unknown]
  - Dyspnoea [Unknown]
  - Constipation [Unknown]
